FAERS Safety Report 7134562-0 (Version None)
Quarter: 2010Q4

REPORT INFORMATION
  Report Type: 
  Country: None (occurrence: None)
  Receive Date: 20101129
  Receipt Date: 20101129
  Transmission Date: 20110411
  Serious: Yes (Disabling)
  Sender: FDA-Public Use
  Company Number: None

PATIENT
  Age: 67 Year
  Sex: Female
  Weight: 104.3273 kg

DRUGS (1)
  1. CIPROFLOXACIN 500MG BAYER [Suspect]
     Indication: DIVERTICULITIS
     Dosage: 20 TABLETS 1 PILL EVERY 12 HR ORAL
     Route: 048
     Dates: start: 20100201, end: 20100210

REACTIONS (4)
  - GAIT DISTURBANCE [None]
  - PAIN [None]
  - TENDON INJURY [None]
  - WEIGHT BEARING DIFFICULTY [None]
